FAERS Safety Report 8224579-7 (Version None)
Quarter: 2012Q1

REPORT INFORMATION
  Report Type: 
  Country: None (occurrence: None)
  Receive Date: 20120321
  Receipt Date: 20120309
  Transmission Date: 20120608
  Serious: Yes (Other)
  Sender: FDA-Public Use
  Company Number: US-ELI_LILLY_AND_COMPANY-US201203003857

PATIENT
  Age: 50 Year
  Sex: Female

DRUGS (2)
  1. STRATTERA [Suspect]
     Indication: ATTENTION DEFICIT/HYPERACTIVITY DISORDER
     Dosage: 1 DF, UNK
     Dates: start: 20120208
  2. STRATTERA [Suspect]
     Dosage: 40 MG, UNK

REACTIONS (13)
  - FATIGUE [None]
  - SOMNOLENCE [None]
  - ABDOMINAL DISTENSION [None]
  - POOR QUALITY SLEEP [None]
  - SUICIDAL IDEATION [None]
  - MENSTRUATION IRREGULAR [None]
  - IRRITABILITY [None]
  - PERIPHERAL COLDNESS [None]
  - DRY MOUTH [None]
  - DYSMENORRHOEA [None]
  - CONSTIPATION [None]
  - TREMOR [None]
  - CHILLS [None]
